FAERS Safety Report 10145610 (Version 1)
Quarter: 2014Q2

REPORT INFORMATION
  Report Type: Spontaneous
  Country: US (occurrence: US)
  Receive Date: 20140501
  Receipt Date: 20140501
  Transmission Date: 20141212
  Serious: No
  Sender: FDA-Public Use
  Company Number: US-009507513-1404USA014058

PATIENT
  Age: 42 Year
  Sex: Female

DRUGS (3)
  1. SINGULAIR [Suspect]
     Indication: HYPERSENSITIVITY
     Dosage: 10 MG, PRN (DOES NOT NEED IT EVERYDAY AND USES SINGULAIR ONCE A DAY AT MOST)
     Route: 048
     Dates: start: 1999
  2. MONTELUKAST SODIUM [Suspect]
     Route: 048
  3. THYROID [Concomitant]

REACTIONS (1)
  - Coeliac disease [Unknown]
